FAERS Safety Report 5316169-0 (Version None)
Quarter: 2007Q2

REPORT INFORMATION
  Report Type: 
  Country: None (occurrence: None)
  Receive Date: 20070503
  Receipt Date: 20070418
  Transmission Date: 20071010
  Serious: Yes (Other)
  Sender: FDA-Public Use
  Company Number: US-SHR-US-2007-013661

PATIENT
  Age: 40 Year
  Sex: Female

DRUGS (3)
  1. BETASERON [Suspect]
     Dosage: 6 MIU, EVERY 2D
     Route: 058
     Dates: start: 20070320
  2. PROVIGIL [Concomitant]
     Dates: start: 20070320
  3. ^ZYMBALTA^ [Concomitant]
     Dates: start: 20070320

REACTIONS (4)
  - INJECTION SITE BRUISING [None]
  - INJECTION SITE ERYTHEMA [None]
  - POLYMENORRHOEA [None]
  - RECTAL HAEMORRHAGE [None]
